FAERS Safety Report 11409423 (Version 1)
Quarter: 2015Q3

REPORT INFORMATION
  Report Type: Spontaneous
  Country: US (occurrence: US)
  Receive Date: 20150824
  Receipt Date: 20150824
  Transmission Date: 20151125
  Serious: Yes (Other)
  Sender: FDA-Public Use
  Company Number: US-ACCORD-033270

PATIENT
  Age: 30 Year
  Sex: Female

DRUGS (10)
  1. HYDROCORTISONE. [Concomitant]
     Active Substance: HYDROCORTISONE
     Dosage: 20 MG AND 10 MG IN THE MORNING AND EVENING RESPECTIVELY
  2. SULFAMETHOXAZOLE/TRIMETHOPRIM [Concomitant]
     Dosage: 400/ 80 MG ONCE DAILY
  3. AZITHROMYCIN [Concomitant]
     Active Substance: AZITHROMYCIN ANHYDROUS
  4. OMEPRAZOLE. [Concomitant]
     Active Substance: OMEPRAZOLE
  5. ISAVUCONAZOLE [Interacting]
     Active Substance: ISAVUCONAZOLE
     Indication: ASPERGILLUS INFECTION
     Dosage: 200 MG PO THREE TIMES DAILY FOR 2 DAYS, FOLLOWED BY 200 MG PO ONCE DAILY
     Route: 048
  6. AMPHOTERICIN B. [Concomitant]
     Active Substance: AMPHOTERICIN B
     Indication: ASPERGILLUS INFECTION
  7. METOPROLOL [Concomitant]
     Active Substance: METOPROLOL
  8. TACROLIMUS. [Suspect]
     Active Substance: TACROLIMUS
     Indication: PRODUCT USED FOR UNKNOWN INDICATION
     Dosage: INITIALLY RECEIVED 3.5 MG TWICE DAILY
  9. IRON [Concomitant]
     Active Substance: IRON
  10. CASPOFUNGIN [Concomitant]
     Active Substance: CASPOFUNGIN

REACTIONS (3)
  - Drug interaction [Unknown]
  - Drug level increased [Unknown]
  - Alopecia [Unknown]
